FAERS Safety Report 6211836-9 (Version None)
Quarter: 2009Q2

REPORT INFORMATION
  Report Type: 
  Country: None (occurrence: None)
  Receive Date: 20090602
  Receipt Date: 20090521
  Transmission Date: 20091009
  Serious: Yes (Hospitalization)
  Sender: FDA-Public Use
  Company Number: PL-PFIZER INC-2009217777

PATIENT
  Age: 51 Year

DRUGS (8)
  1. SUNITINIB MALATE [Suspect]
     Indication: BREAST CANCER
     Dosage: 37.5 MG, 1X/DAY
     Route: 048
     Dates: start: 20080930, end: 20090502
  2. *CAPECITABINE [Suspect]
     Indication: BREAST CANCER
     Dosage: 950 MG, 2X/DAYDAY 1-14 EVERY 3 WEEKS
     Route: 048
     Dates: start: 20080930, end: 20090502
  3. PANTOPRAZOLE [Concomitant]
     Indication: PROPHYLAXIS AGAINST GASTROINTESTINAL ULCER
     Dosage: 20 MG, 1X/DAY
     Dates: start: 20080930, end: 20090502
  4. SULFASALAZINE [Concomitant]
     Indication: PROPHYLAXIS
     Dosage: 2 G, 2X/DAY
     Dates: start: 20080930, end: 20090502
  5. PHOSPHOLIPIDS [Concomitant]
     Indication: PROPHYLAXIS
     Dosage: UNK
     Dates: start: 20080930, end: 20090502
  6. VITAMIN B6 [Concomitant]
     Indication: NEUTROPENIA
     Dosage: 150 MG, 3X/DAY
     Dates: start: 20081114
  7. VITAMIN B6 [Concomitant]
     Indication: PROPHYLAXIS
  8. THIOGAMMA [Concomitant]
     Indication: HYPERBILIRUBINAEMIA
     Dosage: 1X/DAY
     Dates: start: 20081128, end: 20090502

REACTIONS (1)
  - HYDROTHORAX [None]
